FAERS Safety Report 5102237-5 (Version None)
Quarter: 2006Q3

REPORT INFORMATION
  Report Type: 
  Country: None (occurrence: None)
  Receive Date: 20060912
  Receipt Date: 20060905
  Transmission Date: 20061208
  Serious: Yes (Death)
  Sender: FDA-Public Use
  Company Number: US-JNJFOC-20060901803

PATIENT
  Age: 74 Year
  Sex: Female

DRUGS (3)
  1. ACETAMINOPHEN [Suspect]
     Route: 048
  2. ACETAMINOPHEN [Suspect]
     Indication: DRUG USE FOR UNKNOWN INDICATION
     Route: 048
  3. NARCOTICS [Concomitant]
     Indication: PAIN

REACTIONS (9)
  - ANALGESIC DRUG LEVEL ABOVE THERAPEUTIC [None]
  - BLOOD GLUCOSE INCREASED [None]
  - BLOOD PH INCREASED [None]
  - DRUG TOXICITY [None]
  - HEPATIC FAILURE [None]
  - HYPOXIA [None]
  - LOSS OF CONSCIOUSNESS [None]
  - MEDICATION ERROR [None]
  - THERAPY NON-RESPONDER [None]
